FAERS Safety Report 7544228-0 (Version None)
Quarter: 2011Q2

REPORT INFORMATION
  Report Type: 
  Country: None (occurrence: None)
  Receive Date: 20110613
  Receipt Date: 20070724
  Transmission Date: 20111010
  Serious: Yes (Hospitalization)
  Sender: FDA-Public Use
  Company Number: PHFR2007GB02249

PATIENT
  Sex: Male

DRUGS (2)
  1. CLOZAPINE [Suspect]
     Indication: SCHIZOPHRENIA
     Dosage: 575 MG, QD
     Route: 048
     Dates: start: 20020720
  2. CANNABIS [Suspect]
     Dosage: UNK
     Route: 065

REACTIONS (7)
  - MALAISE [None]
  - AGGRESSION [None]
  - DRUG ABUSE [None]
  - COORDINATION ABNORMAL [None]
  - MENTAL IMPAIRMENT [None]
  - SOMNOLENCE [None]
  - DISORIENTATION [None]
